FAERS Safety Report 9677603 (Version 5)
Quarter: 2014Q1

REPORT INFORMATION
  Report Type: Report from Study
  Country: US (occurrence: US)
  Receive Date: 20131108
  Receipt Date: 20140305
  Transmission Date: 20141002
  Serious: Yes (Life-Threatening, Hospitalization)
  Sender: FDA-Public Use
  Company Number: US-JNJFOC-20131019757

PATIENT
  Age: 60 Year
  Sex: Female
  Weight: 65.77 kg

DRUGS (13)
  1. REMICADE [Suspect]
     Indication: CROHN^S DISEASE
     Route: 042
     Dates: start: 20131015, end: 20131015
  2. REMICADE [Suspect]
     Indication: CROHN^S DISEASE
     Route: 042
     Dates: start: 20130917
  3. REMICADE [Suspect]
     Indication: CROHN^S DISEASE
     Route: 042
     Dates: start: 20130903
  4. PREDNISONE [Concomitant]
     Indication: CROHN^S DISEASE
     Route: 048
     Dates: start: 201305, end: 2013
  5. PREDNISONE [Concomitant]
     Indication: CROHN^S DISEASE
     Route: 048
     Dates: start: 20130925
  6. PREDNISONE [Concomitant]
     Indication: CROHN^S DISEASE
     Dosage: EVERY MORNING
     Route: 048
     Dates: start: 201310
  7. OMEPRAZOLE [Concomitant]
     Indication: CROHN^S DISEASE
     Route: 048
     Dates: start: 20130703
  8. OMEPRAZOLE [Concomitant]
     Indication: CROHN^S DISEASE
     Route: 048
     Dates: start: 201309
  9. OMEPRAZOLE [Concomitant]
     Indication: DYSPEPSIA
     Route: 048
     Dates: start: 20130703
  10. OMEPRAZOLE [Concomitant]
     Indication: DYSPEPSIA
     Route: 048
     Dates: start: 201309
  11. 6-MP [Concomitant]
     Indication: CROHN^S DISEASE
     Route: 065
     Dates: start: 20130703
  12. 6-MP [Concomitant]
     Indication: CROHN^S DISEASE
     Route: 065
     Dates: start: 20130925, end: 201309
  13. COUMADIN [Concomitant]
     Route: 065

REACTIONS (10)
  - Adenocarcinoma of colon [Recovered/Resolved with Sequelae]
  - Pulmonary embolism [Unknown]
  - Ileal stenosis [Unknown]
  - Deep vein thrombosis [Unknown]
  - Colitis [Unknown]
  - Small intestinal obstruction [Not Recovered/Not Resolved]
  - Crohn^s disease [Unknown]
  - Deep vein thrombosis [Unknown]
  - Haemoglobin decreased [Unknown]
  - Pain [Recovering/Resolving]
